FAERS Safety Report 6962619-3 (Version None)
Quarter: 2010Q3

REPORT INFORMATION
  Report Type: 
  Country: None (occurrence: None)
  Receive Date: 20100902
  Receipt Date: 20100826
  Transmission Date: 20110219
  Serious: Yes (Hospitalization)
  Sender: FDA-Public Use
  Company Number: FR-PFIZER INC-2010107467

PATIENT
  Age: 64 Year
  Sex: Male

DRUGS (6)
  1. TAHOR [Suspect]
     Dosage: 20 MG, 1X/DAY
     Route: 048
     Dates: start: 20090101, end: 20100605
  2. SITAGLIPTIN [Suspect]
     Dosage: 100 MG, 1X/DAY
     Route: 048
     Dates: start: 20100101, end: 20100605
  3. GLUCOR [Suspect]
     Dosage: 100 MG, 3X/DAY
     Route: 048
     Dates: start: 20100101, end: 20100605
  4. LOXEN [Concomitant]
     Dosage: UNK
  5. FORTZAAR [Concomitant]
     Dosage: [LOSARTAN 100]/[HYDROCHLOROTHIAZIDE 25], UNK
  6. DIAMICRON [Concomitant]
     Dosage: 30MG, UNK
     Dates: start: 20100501, end: 20100101

REACTIONS (2)
  - HEPATIC STEATOSIS [None]
  - PANCREATITIS [None]
